FAERS Safety Report 13526071 (Version 2)
Quarter: 2017Q2

REPORT INFORMATION
  Report Type: Spontaneous
  Country: US (occurrence: US)
  Receive Date: 20170509
  Receipt Date: 20170609
  Transmission Date: 20170830
  Serious: No
  Sender: FDA-Public Use
  Company Number: US-ASTRAZENECA-2017SE48876

PATIENT
  Sex: Female
  Weight: 64 kg

DRUGS (3)
  1. NEXIUM 24HR [Suspect]
     Active Substance: ESOMEPRAZOLE MAGNESIUM
     Indication: DYSPHONIA
     Dosage: 2 TABLETS IN THE MORNING
     Route: 048
     Dates: start: 20170425
  2. NEXIUM 24HR [Suspect]
     Active Substance: ESOMEPRAZOLE MAGNESIUM
     Indication: DYSPHONIA
     Route: 048
     Dates: start: 20170425, end: 20170429
  3. VALSARTAN. [Concomitant]
     Active Substance: VALSARTAN
     Indication: HYPERTENSION

REACTIONS (11)
  - Oropharyngeal pain [Unknown]
  - Drug ineffective [Unknown]
  - Malaise [Unknown]
  - Productive cough [Unknown]
  - Intentional product misuse [Unknown]
  - Dyspepsia [Unknown]
  - Fatigue [Unknown]
  - Poor quality sleep [Unknown]
  - Eructation [Recovered/Resolved]
  - Product use in unapproved indication [Unknown]
  - Condition aggravated [Unknown]

NARRATIVE: CASE EVENT DATE: 20170425
